FAERS Safety Report 16774392 (Version 1)
Quarter: 2019Q3

REPORT INFORMATION
  Report Type: Report from Study
  Country: GB (occurrence: GB)
  Receive Date: 20190905
  Receipt Date: 20190905
  Transmission Date: 20191005
  Serious: Yes (Other)
  Sender: FDA-Public Use
  Company Number: GB-EMD SERONO-9114806

PATIENT
  Sex: Male

DRUGS (1)
  1. REBIF [Suspect]
     Active Substance: INTERFERON BETA-1A
     Indication: MULTIPLE SCLEROSIS
     Dosage: 0.5ML (12MILLION UNITS) SOLUTION FOR INJECTION 1.5ML CARTRIDGES, STRENGTH OR DOSE: 36 MEGA U/1.5 ML

REACTIONS (1)
  - Surgery [Unknown]
